FAERS Safety Report 4361342-1 (Version None)
Quarter: 2004Q2

REPORT INFORMATION
  Report Type: 
  Country: None (occurrence: None)
  Receive Date: 20040521
  Receipt Date: 20031222
  Transmission Date: 20050107
  Serious: Yes (Hospitalization, Other)
  Sender: FDA-Public Use
  Company Number: PHBS2003JP14452

PATIENT
  Age: 74 Year
  Sex: Male

DRUGS (10)
  1. LAMISIL [Suspect]
     Indication: NAIL TINEA
     Dosage: 125 MG/D
     Route: 048
     Dates: start: 20031125, end: 20031208
  2. EBASTEL [Concomitant]
     Dosage: 1 DF/D
     Route: 048
     Dates: start: 20031125, end: 20031214
  3. SIGMART [Concomitant]
     Route: 048
  4. MYONAL [Concomitant]
     Route: 048
  5. ALESION [Concomitant]
     Route: 048
  6. MYSER [Concomitant]
     Dosage: 1 G/D
     Route: 061
     Dates: start: 20031125, end: 20031219
  7. HIRUDOID [Concomitant]
     Dosage: 3 G/D
     Route: 061
     Dates: start: 20031117, end: 20031219
  8. EURAX ^NOVARTIS^ [Concomitant]
     Dosage: 3 G/D
     Route: 061
     Dates: start: 20031117, end: 20031219
  9. LIDOMEX [Concomitant]
     Dosage: 0.5 G/D
     Route: 061
     Dates: start: 20031031, end: 20031219
  10. DEPRODONE PROPIONATE [Concomitant]
     Dosage: 1 G/D
     Route: 061
     Dates: start: 20031125, end: 20031219

REACTIONS (14)
  - ABASIA [None]
  - ASTHENIA [None]
  - BLOOD CREATININE INCREASED [None]
  - BLOOD UREA INCREASED [None]
  - CONVULSION [None]
  - EPILEPSY [None]
  - EYE MOVEMENT DISORDER [None]
  - OLIGURIA [None]
  - PAIN [None]
  - PORIOMANIA [None]
  - PRURITUS [None]
  - RENAL DISORDER [None]
  - RESTLESSNESS [None]
  - SOMNOLENCE [None]
